FAERS Safety Report 8943173 (Version 2)
Quarter: 2012Q4

REPORT INFORMATION
  Report Type: 
  Country: CA (occurrence: CA)
  Receive Date: 20121204
  Receipt Date: 20121210
  Transmission Date: 20130627
  Serious: Yes (Other)
  Sender: FDA-Public Use
  Company Number: CA-BAYER-2012-126427

PATIENT
  Age: 13 Year
  Sex: Male

DRUGS (3)
  1. KOGENATE FS [Suspect]
     Indication: HEMOPHILIA
     Dosage: UNK, TIW
  2. VITAMINS [Concomitant]
  3. CYCLOKAPRON [Concomitant]
     Indication: NOSE BLEEDS

REACTIONS (1)
  - Haemorrhage [Recovered/Resolved]
